FAERS Safety Report 25440192 (Version 1)
Quarter: 2025Q2

REPORT INFORMATION
  Report Type: Spontaneous
  Country: US (occurrence: None)
  Receive Date: 20250615
  Receipt Date: 20250615
  Transmission Date: 20250717
  Serious: Yes (Hospitalization)
  Sender: FDA-CTU
  Company Number: None

PATIENT
  Age: 83 Year
  Sex: Male
  Weight: 51.9 kg

DRUGS (3)
  1. DARATUMUMAB\HYALURONIDASE-FIHJ [Suspect]
     Active Substance: DARATUMUMAB\HYALURONIDASE-FIHJ
  2. LENALIDOMIDE [Suspect]
     Active Substance: LENALIDOMIDE
  3. DEXAMETHASONE [Suspect]
     Active Substance: DEXAMETHASONE

REACTIONS (8)
  - Fatigue [None]
  - Orthostatic hypotension [None]
  - Fall [None]
  - Encephalopathy [None]
  - Dehydration [None]
  - Acute kidney injury [None]
  - Urinary tract infection [None]
  - Escherichia infection [None]

NARRATIVE: CASE EVENT DATE: 20240727
